FAERS Safety Report 25146381 (Version 2)
Quarter: 2025Q2

REPORT INFORMATION
  Report Type: Report from Study
  Country: US (occurrence: US)
  Receive Date: 20250401
  Receipt Date: 20250403
  Transmission Date: 20250717
  Serious: Yes (Other)
  Sender: IPSEN
  Company Number: US-IPSEN Group, Research and Development-2024-07209

PATIENT
  Age: 46 Year
  Sex: Female

DRUGS (1)
  1. DYSPORT [Suspect]
     Active Substance: ABOBOTULINUMTOXINA
     Indication: Product used for unknown indication
     Route: 065
     Dates: start: 202404, end: 202404

REACTIONS (3)
  - Pain [Unknown]
  - Product administration error [Unknown]
  - Product availability issue [Unknown]

NARRATIVE: CASE EVENT DATE: 20240401
